FAERS Safety Report 22982203 (Version 2)
Quarter: 2023Q4

REPORT INFORMATION
  Report Type: Spontaneous
  Country: US (occurrence: US)
  Receive Date: 20230926
  Receipt Date: 20231007
  Transmission Date: 20240109
  Serious: Yes (Life-Threatening, Hospitalization, Disabling, Other)
  Sender: FDA-Public Use
  Company Number: US-CELLTRION INC.-2023US018491

PATIENT

DRUGS (5)
  1. TRUXIMA [Suspect]
     Active Substance: RITUXIMAB-ABBS
     Indication: Iridocyclitis
     Dosage: 1000 MG, Q2WEEKS
     Route: 042
     Dates: start: 20221205
  2. TRUXIMA [Suspect]
     Active Substance: RITUXIMAB-ABBS
     Indication: Chorioretinitis
     Dosage: 1000 MG, Q2WEEKS
     Route: 042
     Dates: start: 20221219
  3. SYNTHROID [Concomitant]
     Active Substance: LEVOTHYROXINE SODIUM
  4. ALLEGRA [Concomitant]
     Active Substance: FEXOFENADINE HYDROCHLORIDE
  5. PREDNISONE [Concomitant]
     Active Substance: PREDNISONE
     Dosage: COMING OFF PREDNISONE (5MG TO 2MG)

REACTIONS (23)
  - Sepsis [Recovered/Resolved]
  - Endocarditis [Recovered/Resolved]
  - Osteomyelitis [Recovered/Resolved]
  - Gait inability [Not Recovered/Not Resolved]
  - Staphylococcal infection [Unknown]
  - Localised infection [Unknown]
  - Neuropathy peripheral [Unknown]
  - Pyrexia [Unknown]
  - Pyrexia [Unknown]
  - Chills [Unknown]
  - Pain [Unknown]
  - Arthritis bacterial [Unknown]
  - Abscess [Unknown]
  - Bone erosion [Unknown]
  - Nausea [Recovered/Resolved]
  - Vomiting [Recovered/Resolved]
  - Pain in extremity [Unknown]
  - Malaise [Unknown]
  - Illness [Unknown]
  - Asthenia [Unknown]
  - Abdominal discomfort [Unknown]
  - Product dose omission issue [Unknown]
  - Intentional product use issue [Unknown]

NARRATIVE: CASE EVENT DATE: 20221205
